FAERS Safety Report 18251794 (Version 2)
Quarter: 2020Q3

REPORT INFORMATION
  Report Type: Spontaneous
  Country: BE (occurrence: BE)
  Receive Date: 20200910
  Receipt Date: 20200923
  Transmission Date: 20201103
  Serious: Yes (Other)
  Sender: FDA-Public Use
  Company Number: BE-TEVA-2020-BE-1826281

PATIENT
  Age: 46 Year
  Weight: 46 kg

DRUGS (4)
  1. FOLIUM PLUS [Concomitant]
     Route: 048
     Dates: start: 202006
  2. AJOVY [Suspect]
     Active Substance: FREMANEZUMAB-VFRM
     Indication: MIGRAINE
     Dosage: 1 INJECTION
     Route: 058
     Dates: start: 20200714, end: 20200714
  3. BISPOPROLOL [Concomitant]
     Indication: EXTRASYSTOLES
     Dosage: 1.25 MG
     Route: 048
     Dates: start: 2014
  4. PANTOMED [Concomitant]
     Dosage: 20 MG
     Route: 048
     Dates: start: 202005

REACTIONS (5)
  - Restlessness [Recovering/Resolving]
  - Insomnia [Recovering/Resolving]
  - Angina pectoris [Recovered/Resolved]
  - Dyspnoea [Recovered/Resolved]
  - Pruritus [Recovering/Resolving]

NARRATIVE: CASE EVENT DATE: 20200715
